FAERS Safety Report 4304587-9 (Version None)
Quarter: 2004Q1

REPORT INFORMATION
  Report Type: 
  Country: None (occurrence: None)
  Receive Date: 20040226
  Receipt Date: 20040218
  Transmission Date: 20041129
  Serious: Yes (Other)
  Sender: FDA-Public Use
  Company Number: 200410534EU

PATIENT
  Age: 73 Year
  Sex: Female

DRUGS (6)
  1. LANTUS [Suspect]
     Indication: DIABETES MELLITUS NON-INSULIN-DEPENDENT
     Route: 058
     Dates: start: 20040130
  2. NOVORAPID [Concomitant]
     Route: 058
     Dates: start: 20040120
  3. CASBOL [Concomitant]
     Route: 048
     Dates: start: 20040130
  4. LIPLAT [Concomitant]
     Route: 048
     Dates: start: 20040130
  5. APROVEL [Concomitant]
     Route: 048
     Dates: start: 20040130
  6. SEGURIL [Concomitant]
     Route: 048
     Dates: start: 20040130

REACTIONS (4)
  - ANXIETY [None]
  - BLOOD GLUCOSE INCREASED [None]
  - BURNING SENSATION [None]
  - MALAISE [None]
